FAERS Safety Report 10159300 (Version 1)
Quarter: 2014Q2

REPORT INFORMATION
  Report Type: Spontaneous
  Country: US (occurrence: None)
  Receive Date: 20140506
  Receipt Date: 20140506
  Transmission Date: 20141212
  Serious: Yes (Other)
  Sender: FDA-Public Use
  Company Number: FK201401585

PATIENT
  Age: 65 Year
  Sex: Male
  Weight: 67.13 kg

DRUGS (6)
  1. ASTRAMORPH/ PF (MORPHINE SULFATE) [Suspect]
     Indication: DYSPNOEA
     Dates: start: 2013
  2. JALYN (DUTAS-T) [Concomitant]
  3. TUDORZA (ACLIDINIUM BROMIDE) [Concomitant]
  4. ASPIRIN (ACETYLSALICYLIC ACID) [Concomitant]
  5. DALIRESP (ROFLUMILAST) [Concomitant]
  6. SYMBICORT (BUDESONIDE W/ FORMOTEROL FUMARATE) [Concomitant]

REACTIONS (5)
  - Amnesia [None]
  - Fall [None]
  - Abnormal dreams [None]
  - Hallucination [None]
  - Periorbital contusion [None]
